FAERS Safety Report 8844033 (Version 1)
Quarter: 2012Q4

REPORT INFORMATION
  Report Type: 
  Country: US (occurrence: US)
  Receive Date: 20121017
  Receipt Date: 20121017
  Transmission Date: 20130627
  Serious: No
  Sender: FDA-Public Use
  Company Number: US-BIOGENIDEC-2012BI044703

PATIENT
  Sex: Female

DRUGS (2)
  1. AVONEX [Suspect]
     Indication: MULTIPLE SCLEROSIS
     Route: 030
     Dates: start: 20030313, end: 20050502
  2. AVONEX [Suspect]
     Indication: MULTIPLE SCLEROSIS
     Route: 030
     Dates: start: 20120922

REACTIONS (7)
  - Stress [Not Recovered/Not Resolved]
  - Somnolence [Recovered/Resolved]
  - Apathy [Recovered/Resolved]
  - Memory impairment [Not Recovered/Not Resolved]
  - Malaise [Unknown]
  - Pain [Recovered/Resolved]
  - Alopecia [Not Recovered/Not Resolved]
